FAERS Safety Report 9368890 (Version 1)
Quarter: 2013Q2

REPORT INFORMATION
  Report Type: Spontaneous
  Country: KR (occurrence: None)
  Receive Date: 20130621
  Receipt Date: 20130621
  Transmission Date: 20140414
  Serious: Yes (Other)
  Sender: FDA-Public Use
  Company Number: 2013P1008872

PATIENT
  Age: 60 Year
  Sex: Male

DRUGS (2)
  1. ALFUZOSIN [Suspect]
     Indication: BENIGN PROSTATIC HYPERPLASIA
     Dates: end: 201012
  2. FINASTERIDE [Suspect]
     Indication: BENIGN PROSTATIC HYPERPLASIA
     Dates: end: 201012

REACTIONS (10)
  - Dizziness [None]
  - Visual acuity reduced [None]
  - Vision blurred [None]
  - Anaemia [None]
  - Pupillary reflex impaired [None]
  - Colour blindness [None]
  - Optic atrophy [None]
  - Visual evoked potentials abnormal [None]
  - Hypotension [None]
  - Optic ischaemic neuropathy [None]
